FAERS Safety Report 8457300-8 (Version None)
Quarter: 2012Q2

REPORT INFORMATION
  Report Type: 
  Country: None (occurrence: None)
  Receive Date: 20120621
  Receipt Date: 20120618
  Transmission Date: 20120825
  Serious: Yes (Death)
  Sender: FDA-Public Use
  Company Number: US-ELI_LILLY_AND_COMPANY-US201203007208

PATIENT
  Sex: Female
  Weight: 47.166 kg

DRUGS (5)
  1. ROXANOL [Concomitant]
  2. ADCIRCA [Suspect]
     Indication: PULMONARY ARTERIAL HYPERTENSION
     Dosage: 40 MG, QD
     Dates: start: 20120101, end: 20120305
  3. MILK OF MAGNESIUM [Concomitant]
  4. TYLENOL                                 /SCH/ [Concomitant]
  5. ATIVAN [Concomitant]

REACTIONS (1)
  - CARDIAC FAILURE CONGESTIVE [None]
